FAERS Safety Report 9060919 (Version 1)
Quarter: 2013Q1

REPORT INFORMATION
  Report Type: Spontaneous
  Country: DE (occurrence: DE)
  Receive Date: 20130212
  Receipt Date: 20130212
  Transmission Date: 20140127
  Serious: Yes (Other)
  Sender: FDA-Public Use
  Company Number: DE-MYLANLABS-2013S1002711

PATIENT
  Age: 31 Year
  Sex: Female

DRUGS (9)
  1. AZATHIOPRINE [Suspect]
     Indication: CROHN^S DISEASE
     Dosage: 150 [MG/D (3X50) ]
     Route: 048
     Dates: start: 20120128, end: 20121106
  2. REMICADE [Suspect]
     Indication: CROHN^S DISEASE
     Dosage: 14.02., 12.04., 05.06., 31.07. AND 26.09.2012
     Route: 048
     Dates: start: 20120214, end: 20120926
  3. ACICLOVIR [Concomitant]
     Indication: ORAL HERPES
     Dosage: 1200 [MG/D (3X400) ]
     Route: 048
     Dates: start: 20120210, end: 20120215
  4. VITAMIN B [Concomitant]
     Indication: CROHN^S DISEASE
     Dosage: 1000 [UG/D ]/ 14.02., 12.04., 05.06., 31.07. AND 26.09.2012
     Route: 048
     Dates: start: 20120214, end: 20120926
  5. RHOPHYLAC [Concomitant]
     Indication: PROPHYLAXIS AGAINST RH ISOIMMUNISATION
     Dosage: 300 [UG/D ]
     Route: 048
     Dates: start: 20120312, end: 20120813
  6. CEFUROXIME [Concomitant]
     Indication: GENITAL ABSCESS
     Dosage: 1000 [MG/D (2X500) ]
     Route: 048
     Dates: start: 20121026, end: 20121106
  7. FOLIO FORTE [Concomitant]
     Indication: PROPHYLAXIS OF NEURAL TUBE DEFECT
     Dosage: 0.8 [MG/D ]
     Route: 048
     Dates: start: 20120128, end: 20121106
  8. MINPROSTIN [Concomitant]
     Indication: LABOUR INDUCTION
     Route: 067
     Dates: start: 20121106, end: 20121106
  9. OXYTOCIN [Concomitant]
     Indication: LABOUR INDUCTION
     Route: 042
     Dates: start: 20121106, end: 20121106

REACTIONS (2)
  - Exposure during pregnancy [Unknown]
  - Gestational diabetes [Unknown]
